FAERS Safety Report 13638585 (Version 2)
Quarter: 2017Q2

REPORT INFORMATION
  Report Type: Report from Study
  Country: BR (occurrence: BR)
  Receive Date: 20170609
  Receipt Date: 20170621
  Transmission Date: 20170830
  Serious: Yes (Death, Other)
  Sender: FDA-Public Use
  Company Number: PHHY2017BR084616

PATIENT
  Age: 92 Year
  Sex: Female
  Weight: 32 kg

DRUGS (1)
  1. EXELON PATCH [Suspect]
     Active Substance: RIVASTIGMINE
     Indication: DEMENTIA ALZHEIMER^S TYPE
     Dosage: 4.6 MG, QD PATCH 5 (CM2)
     Route: 062

REACTIONS (6)
  - Weight decreased [Unknown]
  - Concomitant disease aggravated [Unknown]
  - Decreased appetite [Unknown]
  - Somnolence [Unknown]
  - Renal failure [Unknown]
  - Death [Fatal]
